FAERS Safety Report 11018277 (Version 2)
Quarter: 2015Q2

REPORT INFORMATION
  Report Type: Spontaneous
  Country: US (occurrence: US)
  Receive Date: 20150412
  Receipt Date: 20150524
  Transmission Date: 20150821
  Serious: Yes (Other)
  Sender: FDA-Public Use
  Company Number: US-JNJFOC-20130707782

PATIENT
  Sex: Female

DRUGS (3)
  1. CYCLOPHOSPHAMIDE. [Suspect]
     Active Substance: CYCLOPHOSPHAMIDE
     Indication: BREAST CANCER
     Dosage: ON DAY 1 OF EACH 14-DAY CYCLE X 4 CYCLES
     Route: 042
  2. ERIBULIN [Suspect]
     Active Substance: ERIBULIN
     Indication: BREAST CANCER
     Dosage: OVER 2-5MIN ON DAYS 1 AND 8 EVERY 21 DAYS X4 CYCLES
     Route: 042
  3. DOXORUBICIN [Suspect]
     Active Substance: DOXORUBICIN
     Indication: BREAST CANCER
     Dosage: ON DAY 1 OF EACH 14-DAY CYCLE X 4 CYCLES
     Route: 042

REACTIONS (7)
  - Febrile neutropenia [Unknown]
  - Nausea [Unknown]
  - Fatigue [Unknown]
  - Neuropathy peripheral [Unknown]
  - Leukopenia [Unknown]
  - Alopecia [Unknown]
  - Neutropenia [Unknown]
